FAERS Safety Report 17560758 (Version 1)
Quarter: 2020Q1

REPORT INFORMATION
  Report Type: Spontaneous
  Country: DE (occurrence: DE)
  Receive Date: 20200319
  Receipt Date: 20200319
  Transmission Date: 20200409
  Serious: Yes (Other)
  Sender: FDA-Public Use
  Company Number: DE-PFIZER INC-2020115852

PATIENT
  Sex: Male

DRUGS (1)
  1. CYTOTEC [Suspect]
     Active Substance: MISOPROSTOL
     Indication: LABOUR INDUCTION
     Dosage: HAS BEEN SLOWLY INCREASED FROM 25-200
     Dates: start: 20191105, end: 20191109

REACTIONS (2)
  - Foetal exposure during delivery [Unknown]
  - Neonatal infection [Recovered/Resolved]

NARRATIVE: CASE EVENT DATE: 20191111
